FAERS Safety Report 9724878 (Version 1)
Quarter: 2013Q4

REPORT INFORMATION
  Report Type: Report from Study
  Country: US (occurrence: US)
  Receive Date: 20131202
  Receipt Date: 20131202
  Transmission Date: 20140711
  Serious: Yes (Other)
  Sender: FDA-Public Use
  Company Number: US-EXELIXIS-XL18413003676

PATIENT
  Age: 50 Year
  Sex: Female

DRUGS (4)
  1. XL184 [Suspect]
     Indication: BREAST CANCER
     Dosage: 60 MG, QD
     Route: 048
     Dates: start: 20131018
  2. MOTRIN [Concomitant]
  3. OXYCODONE [Concomitant]
  4. OXYCONTIN [Concomitant]

REACTIONS (2)
  - Mucosal infection [Recovering/Resolving]
  - Pharyngeal abscess [Recovering/Resolving]
